FAERS Safety Report 13966386 (Version 2)
Quarter: 2017Q4

REPORT INFORMATION
  Report Type: Report from Study
  Country: BE (occurrence: BE)
  Receive Date: 20170913
  Receipt Date: 20171018
  Transmission Date: 20180320
  Serious: Yes (Hospitalization, Other)
  Sender: FDA-Public Use
  Company Number: BE-GILEAD-2017-0292319

PATIENT
  Age: 45 Year
  Sex: Male
  Weight: 87.1 kg

DRUGS (7)
  1. LORMETAZEPAM [Concomitant]
     Active Substance: LORMETAZEPAM
     Indication: DEPRESSION
     Dosage: UNK
     Route: 048
     Dates: start: 201506
  2. TRAZODONE [Concomitant]
     Active Substance: TRAZODONE HYDROCHLORIDE
     Indication: DEPRESSION
     Dosage: UNK, QD
     Route: 048
     Dates: start: 201506
  3. EMTRICITABINE/TENOFOVIR DISOPROXIL FUMARATE [Suspect]
     Active Substance: EMTRICITABINE\TENOFOVIR DISOPROXIL FUMARATE
     Indication: PROPHYLAXIS AGAINST HIV INFECTION
     Dosage: UNK, QD
     Route: 065
     Dates: start: 20160518, end: 20160816
  4. PANTOPRAZOLE [Concomitant]
     Active Substance: PANTOPRAZOLE
     Indication: ABDOMINAL DISCOMFORT
     Dosage: 40 MG, QD
     Route: 048
  5. EMTRICITABINE/TENOFOVIR DISOPROXIL FUMARATE [Suspect]
     Active Substance: EMTRICITABINE\TENOFOVIR DISOPROXIL FUMARATE
     Dosage: UNK
     Route: 065
     Dates: start: 20160816
  6. AAS [Concomitant]
     Active Substance: ASPIRIN
     Indication: PERICARDITIS
     Dosage: 1 G 4-3-2, QD
     Route: 048
     Dates: start: 20170811
  7. RUPATADINE [Concomitant]
     Active Substance: RUPATADINE
     Indication: HYPERSENSITIVITY
     Dosage: 10 MG, PRN
     Route: 048

REACTIONS (1)
  - Atrial fibrillation [Recovered/Resolved]

NARRATIVE: CASE EVENT DATE: 20170524
